FAERS Safety Report 9407089 (Version 1)
Quarter: 2013Q3

REPORT INFORMATION
  Report Type: Report from Study
  Country: US (occurrence: US)
  Receive Date: 20130718
  Receipt Date: 20130718
  Transmission Date: 20140515
  Serious: Yes (Other)
  Sender: FDA-Public Use
  Company Number: US-ASTELLAS-2013US007630

PATIENT
  Sex: 0

DRUGS (2)
  1. TARCEVA [Suspect]
     Indication: NON-SMALL CELL LUNG CANCER
     Dosage: 150 MG, UID/QD ON DAYS 1-21
     Route: 048
  2. CPG 7909 [Suspect]
     Indication: NON-SMALL CELL LUNG CANCER
     Dosage: 0.2 MG/KG, WEEKLY DAYS 1, 8 AND 15
     Route: 058

REACTIONS (1)
  - Lymphopenia [Unknown]
